FAERS Safety Report 21184882 (Version 1)
Quarter: 2022Q3

REPORT INFORMATION
  Report Type: Spontaneous
  Country: US (occurrence: None)
  Receive Date: 20220808
  Receipt Date: 20220808
  Transmission Date: 20221027
  Serious: Yes (Other)
  Sender: FDA-Public Use
  Company Number: 2022A269323

PATIENT
  Age: 72 Year
  Sex: Female
  Weight: 68 kg

DRUGS (2)
  1. TAGRISSO [Suspect]
     Active Substance: OSIMERTINIB
     Indication: Lung adenocarcinoma
     Route: 048
     Dates: start: 2017
  2. XGEVA [Concomitant]
     Active Substance: DENOSUMAB

REACTIONS (8)
  - Pneumonia aspiration [Not Recovered/Not Resolved]
  - Pneumonitis aspiration [Not Recovered/Not Resolved]
  - Pulmonary mass [Not Recovered/Not Resolved]
  - Pain in jaw [Recovering/Resolving]
  - Jaw disorder [Unknown]
  - Tooth infection [Not Recovered/Not Resolved]
  - Osteonecrosis of jaw [Recovering/Resolving]
  - Body height decreased [Not Recovered/Not Resolved]

NARRATIVE: CASE EVENT DATE: 20220101
